FAERS Safety Report 6151363-0 (Version None)
Quarter: 2009Q2

REPORT INFORMATION
  Report Type: 
  Country: None (occurrence: None)
  Receive Date: 20090410
  Receipt Date: 20090330
  Transmission Date: 20091009
  Serious: Yes (Other)
  Sender: FDA-Public Use
  Company Number: US-JNJFOC-20090401984

PATIENT
  Age: 88 Year
  Sex: Female
  Weight: 63.5 kg

DRUGS (8)
  1. EXTRA STRENGTH TYLENOL [Suspect]
     Indication: NEUROPATHY PERIPHERAL
     Route: 048
  2. EXTRA STRENGTH TYLENOL [Suspect]
     Indication: ARTHRITIS
     Route: 048
  3. ATENOLOL [Concomitant]
     Indication: HYPERTENSION
  4. PRAVACHOL [Concomitant]
     Indication: BLOOD CHOLESTEROL INCREASED
  5. NEXIUM [Concomitant]
     Indication: GASTROOESOPHAGEAL REFLUX DISEASE
  6. OCCUVITE [Concomitant]
     Indication: MEDICAL DIET
  7. A TO Z [Concomitant]
     Indication: MEDICAL DIET
  8. VITAMIN B-12 [Concomitant]
     Indication: NEUROPATHY PERIPHERAL

REACTIONS (1)
  - GLAUCOMA [None]
